FAERS Safety Report 18935141 (Version 1)
Quarter: 2021Q1

REPORT INFORMATION
  Report Type: Spontaneous
  Country: US (occurrence: US)
  Receive Date: 20210224
  Receipt Date: 20210224
  Transmission Date: 20210420
  Serious: No
  Sender: FDA-Public Use
  Company Number: US-009507513-2102USA003742

PATIENT

DRUGS (2)
  1. TEMODAR [Suspect]
     Active Substance: TEMOZOLOMIDE
     Route: 048
  2. CAPECITABINE. [Suspect]
     Active Substance: CAPECITABINE

REACTIONS (2)
  - Drug ineffective [Unknown]
  - Disease progression [Unknown]
